FAERS Safety Report 6553776-1 (Version None)
Quarter: 2010Q1

REPORT INFORMATION
  Report Type: 
  Country: None (occurrence: None)
  Receive Date: 20100127
  Receipt Date: 20100122
  Transmission Date: 20100710
  Serious: Yes (Other)
  Sender: FDA-Public Use
  Company Number: US-BRISTOL-MYERS SQUIBB COMPANY-14930580

PATIENT
  Age: 41 Year
  Sex: Female
  Weight: 63 kg

DRUGS (10)
  1. ABILIFY [Suspect]
     Indication: BIPOLAR DISORDER
     Dosage: DECREASED TO 15MG(QD)
     Route: 048
     Dates: start: 20091001
  2. ABILIFY [Suspect]
     Indication: DEPRESSION
     Dosage: DECREASED TO 15MG(QD)
     Route: 048
     Dates: start: 20091001
  3. AMBIEN CR [Suspect]
  4. LITHIUM [Concomitant]
  5. XANAX [Concomitant]
     Dates: end: 20100101
  6. TYLENOL PM [Concomitant]
  7. AMBIEN [Concomitant]
     Dates: end: 20100101
  8. MULTI-VITAMINS [Concomitant]
  9. BLACK COHOSH [Concomitant]
  10. ADDERALL 10 [Concomitant]

REACTIONS (5)
  - ANGER [None]
  - DELUSION [None]
  - HALLUCINATION [None]
  - LOSS OF CONSCIOUSNESS [None]
  - SOMNAMBULISM [None]
